FAERS Safety Report 10166756 (Version 1)
Quarter: 2014Q2

REPORT INFORMATION
  Report Type: Spontaneous
  Country: US (occurrence: None)
  Receive Date: 20140509
  Receipt Date: 20140509
  Transmission Date: 20141212
  Serious: Yes (Other)
  Sender: FDA-Public Use
  Company Number: None

PATIENT
  Age: 45 Year
  Sex: Female
  Weight: 52.16 kg

DRUGS (3)
  1. BUPROPION HCL XL [Suspect]
     Indication: DEPRESSION
     Route: 048
     Dates: start: 20140401, end: 20140427
  2. VITAMIN C [Concomitant]
  3. MULTI-VITAMINS W/ IRON CALCIUM [Concomitant]

REACTIONS (2)
  - Rash pruritic [None]
  - Erythema [None]
